FAERS Safety Report 5895141-6 (Version None)
Quarter: 2008Q3

REPORT INFORMATION
  Report Type: 
  Country: None (occurrence: None)
  Receive Date: 20080924
  Receipt Date: 20080911
  Transmission Date: 20090109
  Serious: Yes (Hospitalization, Other)
  Sender: FDA-Public Use
  Company Number: FR-PFIZER INC-2008077152

PATIENT
  Age: 49 Year
  Sex: Male

DRUGS (5)
  1. CHANTIX [Interacting]
     Indication: SMOKING CESSATION THERAPY
     Dates: start: 20080401
  2. TAHOR [Interacting]
     Indication: HYPERCHOLESTEROLAEMIA
  3. RANITIDINE [Interacting]
     Indication: GASTROINTESTINAL DISORDER
  4. LICORICE [Suspect]
  5. LERCAN [Concomitant]
     Indication: HYPERTENSION

REACTIONS (3)
  - DRUG INTERACTION [None]
  - HYPOKALAEMIA [None]
  - RHABDOMYOLYSIS [None]
